FAERS Safety Report 9152468 (Version 2)
Quarter: 2013Q1

REPORT INFORMATION
  Report Type: Spontaneous
  Country: US (occurrence: US)
  Receive Date: 20130308
  Receipt Date: 20130319
  Transmission Date: 20140127
  Serious: Yes (Other)
  Sender: FDA-Public Use
  Company Number: CHPA2013US004221

PATIENT
  Age: 36 Year
  Sex: Female

DRUGS (4)
  1. VOLTAREN GEL [Suspect]
     Indication: INTERVERTEBRAL DISC PROTRUSION
     Dosage: 4 G, QID
     Route: 061
     Dates: start: 20130304
  2. VOLTAREN GEL [Suspect]
     Indication: INTERVERTEBRAL DISC DEGENERATION
  3. VOLTAREN GEL [Suspect]
     Indication: ARTHRITIS
  4. LIDODERM [Suspect]

REACTIONS (4)
  - Cystitis [Not Recovered/Not Resolved]
  - Drug ineffective for unapproved indication [Unknown]
  - Drug ineffective [Unknown]
  - Drug administered at inappropriate site [Unknown]
